FAERS Safety Report 6523929-7 (Version None)
Quarter: 2009Q4

REPORT INFORMATION
  Report Type: 
  Country: None (occurrence: None)
  Receive Date: 20091231
  Receipt Date: 20091218
  Transmission Date: 20100525
  Serious: Yes (Hospitalization)
  Sender: FDA-Public Use
  Company Number: DE-PFIZER INC-2009315820

PATIENT
  Age: 76 Year
  Sex: Female

DRUGS (3)
  1. BEXTRA [Suspect]
     Dosage: 20 MG, 1X/DAY
     Route: 048
     Dates: start: 20040802
  2. METAMIZOLE [Suspect]
  3. HEPARIN [Concomitant]
     Indication: CORONARY ARTERY BYPASS

REACTIONS (2)
  - DRUG HYPERSENSITIVITY [None]
  - ERYTHEMA MULTIFORME [None]
